FAERS Safety Report 22374879 (Version 3)
Quarter: 2025Q3

REPORT INFORMATION
  Report Type: Report from Study
  Country: US (occurrence: US)
  Receive Date: 20230527
  Receipt Date: 20250710
  Transmission Date: 20251020
  Serious: Yes (Hospitalization, Other)
  Sender: JAZZ
  Company Number: US-JAZZ PHARMACEUTICALS-2023-US-011323

PATIENT
  Sex: Female

DRUGS (1)
  1. EPIDIOLEX [Suspect]
     Active Substance: CANNABIDIOL
     Indication: Lennox-Gastaut syndrome
     Dosage: 1.7 MILLILITER, BID
     Route: 048
     Dates: start: 202303

REACTIONS (1)
  - Seizure [Unknown]
